FAERS Safety Report 7129497-3 (Version None)
Quarter: 2010Q4

REPORT INFORMATION
  Report Type: 
  Country: None (occurrence: None)
  Receive Date: 20101116
  Receipt Date: 20101101
  Transmission Date: 20110411
  Serious: Yes (Death, Other)
  Sender: FDA-Public Use
  Company Number: DE-ACCORD-006592

PATIENT
  Age: 74 Year

DRUGS (3)
  1. ETOPOSIDE [Suspect]
     Indication: GERM CELL CANCER
  2. CISPLATIN [Suspect]
     Indication: GERM CELL CANCER
  3. IFOSFAMIDE [Suspect]
     Indication: GERM CELL CANCER

REACTIONS (5)
  - CHOLESTASIS [None]
  - MULTI-ORGAN FAILURE [None]
  - OFF LABEL USE [None]
  - PNEUMONIA [None]
  - SEPTIC SHOCK [None]
